FAERS Safety Report 7362607-1 (Version None)
Quarter: 2011Q1

REPORT INFORMATION
  Report Type: 
  Country: None (occurrence: None)
  Receive Date: 20110320
  Receipt Date: 20100616
  Transmission Date: 20110831
  Serious: Yes (Hospitalization)
  Sender: FDA-Public Use
  Company Number: US-BAYER-200940831NA

PATIENT
  Sex: Female
  Weight: 72.562 kg

DRUGS (13)
  1. OCELLA [Suspect]
     Indication: MENSTRUATION IRREGULAR
  2. PLAQUENIL [Concomitant]
     Indication: SYSTEMIC LUPUS ERYTHEMATOSUS
     Dosage: UNK
     Dates: start: 20020101
  3. YASMIN [Suspect]
     Indication: ORAL CONTRACEPTION
     Dates: start: 20030401, end: 20080801
  4. YAZ [Suspect]
     Indication: MENSTRUATION IRREGULAR
  5. TOPAMAX [Concomitant]
     Indication: MIGRAINE
     Dosage: 100 MG, QD
  6. MULTI-VITAMINS [Concomitant]
  7. ALBUTEROL [Concomitant]
     Indication: ASTHMA
     Dosage: UNK
     Dates: start: 20080101
  8. LODINE [Concomitant]
     Indication: PAIN
     Dosage: UNK
     Dates: start: 20040101, end: 20080101
  9. VITAMIN D [Concomitant]
  10. RESTASIS [Concomitant]
     Indication: DRY EYE
     Dosage: UNK
     Dates: start: 20070101, end: 20080101
  11. YASMIN [Suspect]
     Indication: MENSTRUATION IRREGULAR
  12. OCELLA [Suspect]
     Indication: ORAL CONTRACEPTION
     Dates: start: 20080801, end: 20081114
  13. YAZ [Suspect]
     Indication: ORAL CONTRACEPTION
     Dosage: UNK
     Dates: start: 20030101, end: 20040101

REACTIONS (10)
  - GAIT DISTURBANCE [None]
  - FATIGUE [None]
  - CHEST PAIN [None]
  - PULMONARY EMBOLISM [None]
  - MUSCLE SPASMS [None]
  - PAIN IN EXTREMITY [None]
  - DYSPNOEA [None]
  - PAIN [None]
  - DEEP VEIN THROMBOSIS [None]
  - INJURY [None]
